FAERS Safety Report 5626647-2 (Version None)
Quarter: 2008Q1

REPORT INFORMATION
  Report Type: 
  Country: None (occurrence: None)
  Receive Date: 20080214
  Receipt Date: 20080123
  Transmission Date: 20080703
  Serious: No
  Sender: FDA-Public Use
  Company Number: US-BOEHRINGER INGELHEIM GMBH, GERMANY-2008-BP-01047BP

PATIENT
  Age: 77 Year
  Sex: Female

DRUGS (19)
  1. SPIRIVA [Suspect]
     Indication: CHRONIC OBSTRUCTIVE PULMONARY DISEASE
     Route: 055
     Dates: start: 20070701, end: 20071201
  2. ZANTAC [Concomitant]
  3. ALTACE [Concomitant]
  4. CARDIZEM [Concomitant]
  5. XANAX [Concomitant]
  6. MEDROL [Concomitant]
  7. ZOCOR [Concomitant]
  8. PLAVIX [Concomitant]
  9. FLONASE [Concomitant]
  10. ADVAIR DISKUS 100/50 [Concomitant]
  11. ASPIRIN [Concomitant]
  12. ACCOLATE [Concomitant]
  13. ALDACTONE [Concomitant]
  14. FLUMADINE [Concomitant]
  15. TEARS [Concomitant]
  16. TYLENOL W/ CODEINE NO. 3 [Concomitant]
  17. KEFLEX [Concomitant]
  18. PROTAMINE SULFATE [Concomitant]
  19. CYMBALTA [Concomitant]

REACTIONS (4)
  - DRY MOUTH [None]
  - EYE PAIN [None]
  - EYE SWELLING [None]
  - VOMITING [None]
